FAERS Safety Report 12940891 (Version 1)
Quarter: 2016Q4

REPORT INFORMATION
  Report Type: Report from Study
  Country: US (occurrence: US)
  Receive Date: 20161114
  Receipt Date: 20161114
  Transmission Date: 20170207
  Serious: Yes (Other)
  Sender: FDA-Public Use
  Company Number: US-ACTELION-A-US2016-145406

PATIENT
  Age: 72 Year
  Sex: Female

DRUGS (1)
  1. OPSUMIT [Suspect]
     Active Substance: MACITENTAN
     Indication: PULMONARY ARTERIAL HYPERTENSION
     Dosage: 10 MG, UNK
     Route: 048
     Dates: start: 20160919, end: 201610

REACTIONS (6)
  - Terminal state [Not Recovered/Not Resolved]
  - Insomnia [Unknown]
  - Nocturnal dyspnoea [Unknown]
  - Malaise [Unknown]
  - Cough [Unknown]
  - Therapy non-responder [Unknown]
